FAERS Safety Report 16892299 (Version 2)
Quarter: 2019Q4

REPORT INFORMATION
  Report Type: Spontaneous
  Country: US (occurrence: US)
  Receive Date: 20191007
  Receipt Date: 20191023
  Transmission Date: 20200122
  Serious: No
  Sender: FDA-Public Use
  Company Number: US-SA-2019SA268860

PATIENT
  Age: 82 Year
  Sex: Male
  Weight: 88.45 kg

DRUGS (1)
  1. DUPIXENT [Suspect]
     Active Substance: DUPILUMAB
     Indication: DERMATITIS ATOPIC
     Dosage: 300 MG, QOW
     Route: 058
     Dates: start: 20190909

REACTIONS (6)
  - Superficial injury of eye [Unknown]
  - Photophobia [Unknown]
  - Dry eye [Recovered/Resolved]
  - Vision blurred [Unknown]
  - Dermatitis atopic [Recovered/Resolved]
  - Visual impairment [Unknown]

NARRATIVE: CASE EVENT DATE: 201907
